FAERS Safety Report 6719156-0 (Version None)
Quarter: 2010Q2

REPORT INFORMATION
  Report Type: 
  Country: None (occurrence: None)
  Receive Date: 20100511
  Receipt Date: 20100511
  Transmission Date: 20101027
  Serious: No
  Sender: FDA-Public Use
  Company Number: None

PATIENT
  Sex: Male
  Weight: 78.4723 kg

DRUGS (1)
  1. RAMIPRIL [Suspect]

REACTIONS (2)
  - BLOOD PRESSURE INCREASED [None]
  - COUGH [None]
